FAERS Safety Report 19991714 (Version 1)
Quarter: 2021Q4

REPORT INFORMATION
  Report Type: Spontaneous
  Country: JP (occurrence: JP)
  Receive Date: 20211025
  Receipt Date: 20211025
  Transmission Date: 20220303
  Serious: Yes (Other)
  Sender: FDA-Public Use
  Company Number: JP-MYLANLABS-2021M1074914

PATIENT
  Sex: Male
  Weight: 53.9 kg

DRUGS (14)
  1. PREDNISOLONE [Suspect]
     Active Substance: PREDNISOLONE
     Indication: Acute lymphocytic leukaemia recurrent
     Dosage: UNK
     Route: 065
  2. PREDNISOLONE [Suspect]
     Active Substance: PREDNISOLONE
     Dosage: UNK
     Route: 048
     Dates: start: 20180609
  3. TEICOPLANIN [Suspect]
     Active Substance: TEICOPLANIN
     Indication: Febrile neutropenia
     Dosage: UNK
     Route: 042
     Dates: start: 20180604
  4. CYCLOPHOSPHAMIDE [Suspect]
     Active Substance: CYCLOPHOSPHAMIDE
     Indication: Acute lymphocytic leukaemia recurrent
     Route: 065
  5. DAUNORUBICIN [Suspect]
     Active Substance: DAUNORUBICIN
     Indication: Acute lymphocytic leukaemia recurrent
     Route: 065
  6. VINCRISTINE [Suspect]
     Active Substance: VINCRISTINE
     Indication: Acute lymphocytic leukaemia recurrent
     Route: 065
  7. ASPARAGINASE [Suspect]
     Active Substance: ASPARAGINASE
     Indication: Acute lymphocytic leukaemia recurrent
     Route: 065
  8. MEROPENEM [Concomitant]
     Active Substance: MEROPENEM
     Indication: Febrile neutropenia
     Dosage: UNK
     Route: 042
     Dates: start: 20180604
  9. FILGRASTIM [Concomitant]
     Active Substance: FILGRASTIM
     Indication: Febrile neutropenia
     Dosage: UNK
     Route: 058
     Dates: start: 20180604
  10. NAPROXEN [Concomitant]
     Active Substance: NAPROXEN
     Indication: Tumour associated fever
     Dosage: UNK
     Route: 048
     Dates: start: 20180613
  11. LANSOPRAZOLE [Concomitant]
     Active Substance: LANSOPRAZOLE
     Indication: Prophylaxis
     Dosage: UNK
     Route: 048
  12. ACYCLOVIR [Concomitant]
     Active Substance: ACYCLOVIR
     Indication: Prophylaxis
     Dosage: UNK
     Route: 048
  13. VORICONAZOLE [Concomitant]
     Active Substance: VORICONAZOLE
     Indication: Prophylaxis
     Dosage: UNK
     Route: 048
  14. URSO [Concomitant]
     Active Substance: URSODIOL
     Indication: Prophylaxis
     Dosage: UNK
     Route: 048

REACTIONS (2)
  - Remission not achieved [Unknown]
  - Off label use [Unknown]
